FAERS Safety Report 6838315-X (Version None)
Quarter: 2010Q3

REPORT INFORMATION
  Report Type: 
  Country: None (occurrence: None)
  Receive Date: 20100713
  Receipt Date: 20070608
  Transmission Date: 20110219
  Serious: No
  Sender: FDA-Public Use
  Company Number: US-PFIZER INC-2007047951

PATIENT
  Sex: Female
  Weight: 77.3 kg

DRUGS (10)
  1. CHANTIX [Suspect]
     Indication: SMOKING CESSATION THERAPY
     Dates: start: 20070522
  2. CYMBALTA [Concomitant]
  3. PRIMIDONE [Concomitant]
     Indication: ESSENTIAL TREMOR
  4. PLAVIX [Concomitant]
  5. TIZANIDINE HCL [Concomitant]
     Indication: HYPOTONIA
  6. ALPRAZOLAM [Concomitant]
  7. HYDROCHLOROTHIAZIDE [Concomitant]
  8. OSTEO BI-FLEX [Concomitant]
  9. CENTRUM [Concomitant]
  10. ANTIFUNGALS [Concomitant]

REACTIONS (2)
  - DRUG DEPENDENCE [None]
  - ENERGY INCREASED [None]
